FAERS Safety Report 9840722 (Version 1)
Quarter: 2013Q4

REPORT INFORMATION
  Report Type: Spontaneous
  Country: US (occurrence: None)
  Receive Date: 20131211
  Receipt Date: 20131211
  Transmission Date: 20140711
  Serious: Yes (Congenital Anomaly)
  Sender: FDA-Public Use
  Company Number: ALL1-2012-03872

PATIENT
  Sex: 0

DRUGS (1)
  1. CARBAMAZEPINE [Suspect]
     Indication: PRODUCT USED FOR UNKNOWN INDICATION
     Dosage: UNK, UNK, UNKNOWN, TRANSPLACENTAL
     Route: 064

REACTIONS (2)
  - Cleft lip and palate [None]
  - Maternal exposure during pregnancy [None]
